FAERS Safety Report 25682801 (Version 1)
Quarter: 2025Q3

REPORT INFORMATION
  Report Type: Spontaneous
  Country: EU (occurrence: EU)
  Receive Date: 20250814
  Receipt Date: 20250814
  Transmission Date: 20251021
  Serious: Yes (Other)
  Sender: MYLAN
  Company Number: None

PATIENT
  Age: 72 Year
  Sex: Male
  Weight: 62 kg

DRUGS (16)
  1. NEURONTIN [Interacting]
     Active Substance: GABAPENTIN
     Indication: Neuralgia
     Dosage: 1 DOSAGE FORM, QD
     Dates: start: 20230817, end: 20230818
  2. NEURONTIN [Interacting]
     Active Substance: GABAPENTIN
     Dosage: 2 DOSAGE FORM, QD
     Dates: start: 20230819, end: 20230821
  3. SKENAN [Interacting]
     Active Substance: MORPHINE SULFATE
     Indication: Cancer pain
     Dosage: 2 DOSAGE FORM, BID (12 HR)
     Dates: start: 20230808, end: 20230814
  4. MORPHINE HYDROCHLORIDE [Interacting]
     Active Substance: MORPHINE HYDROCHLORIDE
     Indication: Cancer pain
     Dosage: 2.5 MILLIGRAM, QH
     Dates: start: 20230808, end: 20230810
  5. MORPHINE HYDROCHLORIDE [Interacting]
     Active Substance: MORPHINE HYDROCHLORIDE
     Dosage: 5 MILLIGRAM, Q30MIN
     Dates: start: 20230808, end: 20230810
  6. MORPHINE HYDROCHLORIDE [Interacting]
     Active Substance: MORPHINE HYDROCHLORIDE
     Dosage: 3 MILLIGRAM, QH
     Dates: start: 20230810, end: 20230817
  7. MORPHINE HYDROCHLORIDE [Interacting]
     Active Substance: MORPHINE HYDROCHLORIDE
     Dosage: 5 MILLIGRAM, Q30MIN
     Dates: start: 20230810, end: 20230815
  8. MORPHINE HYDROCHLORIDE [Interacting]
     Active Substance: MORPHINE HYDROCHLORIDE
     Dosage: 4 MILLIGRAM, QH
     Dates: start: 20230817, end: 20230819
  9. MORPHINE HYDROCHLORIDE [Interacting]
     Active Substance: MORPHINE HYDROCHLORIDE
     Dates: start: 20230816, end: 20230817
  10. MORPHINE HYDROCHLORIDE [Interacting]
     Active Substance: MORPHINE HYDROCHLORIDE
     Dosage: 3 MILLIGRAM, QH
     Dates: start: 20230819, end: 20230821
  11. MORPHINE HYDROCHLORIDE [Interacting]
     Active Substance: MORPHINE HYDROCHLORIDE
     Dates: start: 20230817, end: 20230821
  12. AMITRIPTYLINE HYDROCHLORIDE [Interacting]
     Active Substance: AMITRIPTYLINE HYDROCHLORIDE
     Indication: Neuralgia
     Dosage: 1 DOSAGE FORM, QD
     Dates: start: 20230817, end: 20230820
  13. DOLIPRANE [Concomitant]
     Active Substance: ACETAMINOPHEN
     Indication: Cancer pain
     Dosage: 1 DOSAGE FORM, Q6H
     Dates: start: 20230807, end: 20230820
  14. LOVENOX [Concomitant]
     Active Substance: ENOXAPARIN SODIUM
     Indication: Thrombosis prophylaxis
     Dosage: 1 DOSAGE FORM, QD
     Dates: start: 20230817, end: 20230822
  15. PANTOPRAZOLE [Concomitant]
     Active Substance: PANTOPRAZOLE
     Indication: Gastritis prophylaxis
     Dosage: 40 MILLIGRAM, QD
     Dates: start: 20230809, end: 20230821
  16. FERROUS FUMARATE [Concomitant]
     Active Substance: FERROUS FUMARATE
     Indication: Anaemia
     Dosage: 2 DOSAGE FORM, QD
     Dates: start: 20230809, end: 20230821

REACTIONS (4)
  - Hallucination [Not Recovered/Not Resolved]
  - Somnolence [Not Recovered/Not Resolved]
  - Confusional state [Not Recovered/Not Resolved]
  - Drug interaction [Recovered/Resolved]

NARRATIVE: CASE EVENT DATE: 20230808
